FAERS Safety Report 6161793-9 (Version None)
Quarter: 2009Q2

REPORT INFORMATION
  Report Type: 
  Country: None (occurrence: None)
  Receive Date: 20090421
  Receipt Date: 20090407
  Transmission Date: 20091009
  Serious: Yes (Other)
  Sender: FDA-Public Use
  Company Number: SE-ROCHE-626260

PATIENT
  Age: 50 Year
  Sex: Male

DRUGS (2)
  1. PEGASYS [Suspect]
     Route: 065
     Dates: start: 20081030, end: 20090316
  2. COPEGUS [Suspect]
     Route: 065
     Dates: start: 20081030, end: 20090316

REACTIONS (2)
  - DEPRESSION [None]
  - LYMPHADENOPATHY [None]
